FAERS Safety Report 4525367-5 (Version None)
Quarter: 2004Q4

REPORT INFORMATION
  Report Type: 
  Country: None (occurrence: None)
  Receive Date: 20041117
  Receipt Date: 20031008
  Transmission Date: 20050328
  Serious: Yes (Other)
  Sender: FDA-Public Use
  Company Number: C2002-2912.01

PATIENT
  Age: 45 Year
  Sex: Female

DRUGS (3)
  1. CLOZAPINE [Suspect]
     Dosage: 500MG QD, ORAL
     Route: 048
     Dates: end: 20020827
  2. CLOZAPINE [Suspect]
     Dosage: 500MG QD, ORAL
     Route: 048
     Dates: start: 20020911
  3. INTERFERON [Suspect]
     Indication: HEPATITIS C

REACTIONS (2)
  - LEUKOPENIA [None]
  - NEUTROPHIL COUNT DECREASED [None]
